FAERS Safety Report 5501879-2 (Version None)
Quarter: 2007Q4

REPORT INFORMATION
  Report Type: 
  Country: None (occurrence: None)
  Receive Date: 20071030
  Receipt Date: 20071026
  Transmission Date: 20080405
  Serious: Yes (Death)
  Sender: FDA-Public Use
  Company Number: BE-BAYER-200716383GDS

PATIENT
  Age: 72 Year
  Sex: Male

DRUGS (6)
  1. AVELOX [Suspect]
     Indication: BRONCHITIS
     Route: 048
     Dates: start: 20071015, end: 20071022
  2. ZINNAT [Concomitant]
     Indication: BRONCHITIS
     Route: 065
     Dates: end: 20071015
  3. MEDROL [Concomitant]
     Indication: DRUG USE FOR UNKNOWN INDICATION
     Route: 065
  4. MEDROL [Concomitant]
     Route: 065
  5. CELEBREX [Concomitant]
     Indication: PAIN
     Route: 065
  6. OXYGEN [Concomitant]
     Indication: HYPOXIA
     Route: 065

REACTIONS (2)
  - MALAISE [None]
  - VENTRICULAR ARRHYTHMIA [None]
